FAERS Safety Report 6160991-8 (Version None)
Quarter: 2009Q2

REPORT INFORMATION
  Report Type: 
  Country: None (occurrence: None)
  Receive Date: 20090420
  Receipt Date: 20090406
  Transmission Date: 20091009
  Serious: Yes (Other)
  Sender: FDA-Public Use
  Company Number: US-BAUSCH-2009BL001605

PATIENT
  Age: 52 Year
  Sex: Male

DRUGS (9)
  1. PREDNISOLONE [Suspect]
     Indication: SYMPATHETIC OPHTHALMIA
     Route: 061
  2. PREDNISONE [Suspect]
     Indication: SYMPATHETIC OPHTHALMIA
     Route: 048
  3. PREDNISONE [Suspect]
     Route: 048
  4. PREDNISONE [Suspect]
     Route: 048
  5. AZATHIOPRINE [Suspect]
     Indication: SYMPATHETIC OPHTHALMIA
     Route: 048
  6. TRIAMCINOLONE ACETONIDE [Suspect]
     Indication: SYMPATHETIC OPHTHALMIA
  7. TRIAMCINOLONE ACETONIDE [Suspect]
  8. CYCLOSPORINE [Suspect]
     Indication: SYMPATHETIC OPHTHALMIA
  9. MYCOPHENOLATE MOFETIL [Suspect]
     Indication: SYMPATHETIC OPHTHALMIA
     Route: 048

REACTIONS (1)
  - DRUG INEFFECTIVE [None]
